FAERS Safety Report 16779370 (Version 1)
Quarter: 2019Q3

REPORT INFORMATION
  Report Type: Spontaneous
  Country: US (occurrence: US)
  Receive Date: 20190906
  Receipt Date: 20190906
  Transmission Date: 20191005
  Serious: No
  Sender: FDA-Public Use
  Company Number: US-GLENMARK PHARMACEUTICALS-2019GMK042155

PATIENT

DRUGS (4)
  1. GABAPENTIN TABLETS [Suspect]
     Active Substance: GABAPENTIN
     Dosage: 3000 MG, QD (600 MG FIVE TIMES A DAY)
     Route: 065
  2. LYRICA [Concomitant]
     Active Substance: PREGABALIN
     Indication: SPINAL CORD INJURY
  3. LYRICA [Concomitant]
     Active Substance: PREGABALIN
     Indication: NEURALGIA
     Dosage: 75 MG, BID
     Route: 065
     Dates: start: 20190621
  4. GABAPENTIN TABLETS [Suspect]
     Active Substance: GABAPENTIN
     Indication: NEURALGIA
     Dosage: 1800 MG, QD (600 MG THREE TIMES A DAY)
     Route: 065

REACTIONS (1)
  - Drug ineffective [Unknown]
